FAERS Safety Report 10236401 (Version 1)
Quarter: 2014Q1

REPORT INFORMATION
  Report Type: Spontaneous
  Country: US (occurrence: None)
  Receive Date: 20140306
  Receipt Date: 20140306
  Transmission Date: 20141002
  Serious: Yes (Other)
  Sender: FDA-Public Use
  Company Number: 163-21880-13042831

PATIENT
  Age: 76 Year
  Sex: Female

DRUGS (4)
  1. REVLIMIDE(LENALIDOMIDE)(10 MILLIGRAM, CAPSULES) [Suspect]
     Indication: 5Q MINUS SYNDROME
     Dosage: 10 MG, 28 IN 28 D, PO
     Route: 048
     Dates: start: 20120814, end: 20130508
  2. LACTIC ACID (LACTIC ACID)(UKNONW) [Concomitant]
  3. TYLENOL(PARACETAMOL)(UKNOWN) [Concomitant]
  4. ASA(ACETYLSALICYLIC ACID)(UKNOWN) [Concomitant]

REACTIONS (1)
  - Cerebrovascular accident [None]
